FAERS Safety Report 4568441-X (Version None)
Quarter: 2005Q1

REPORT INFORMATION
  Report Type: 
  Country: None (occurrence: None)
  Receive Date: 20050131
  Receipt Date: 20050118
  Transmission Date: 20050727
  Serious: Yes (Hospitalization, Disabling)
  Sender: FDA-Public Use
  Company Number: 2005UW01133

PATIENT
  Age: 79 Year
  Sex: Female
  Weight: 140 kg

DRUGS (6)
  1. METOPROLOL SUCCINATE [Suspect]
     Indication: HYPERTENSION
     Dates: start: 20050101
  2. METOPROLOL TARTRATE [Suspect]
     Indication: HYPERTENSION
     Dosage: 100 MG PO
     Route: 048
     Dates: end: 20050113
  3. PURAN T4 [Concomitant]
  4. INSULIN [Concomitant]
  5. ENALAPRIL MALEATE [Concomitant]
  6. FUROSEMIDA [Concomitant]

REACTIONS (4)
  - BLOOD PRESSURE INCREASED [None]
  - FALL [None]
  - MONOPLEGIA [None]
  - PELVIC FRACTURE [None]
